FAERS Safety Report 7424589-3 (Version None)
Quarter: 2011Q2

REPORT INFORMATION
  Report Type: 
  Country: None (occurrence: None)
  Receive Date: 20110419
  Receipt Date: 20110103
  Transmission Date: 20111010
  Serious: No
  Sender: FDA-Public Use
  Company Number: US-TEVA-259458USA

PATIENT
  Sex: Female
  Weight: 54.48 kg

DRUGS (3)
  1. PLAN B ONE-STEP [Suspect]
     Indication: POST COITAL CONTRACEPTION
     Dosage: 1.5 MILLIGRAM;
     Route: 048
     Dates: start: 20101209, end: 20101209
  2. SYNTHROID [Concomitant]
     Indication: THYROID DISORDER
     Route: 048
     Dates: start: 19900101
  3. TOPROL-XL [Concomitant]
     Indication: HYPERTENSION
     Dosage: 25 MILLIGRAM;
     Dates: start: 20060101

REACTIONS (1)
  - DIARRHOEA [None]
